FAERS Safety Report 25730143 (Version 5)
Quarter: 2025Q4

REPORT INFORMATION
  Report Type: Spontaneous
  Country: EG (occurrence: EG)
  Receive Date: 20250827
  Receipt Date: 20251231
  Transmission Date: 20260118
  Serious: Yes (Hospitalization)
  Sender: BIOGEN
  Company Number: EG-BIOGEN-2025BI01311864

PATIENT
  Age: 41 Year
  Sex: Female
  Weight: 72 kg

DRUGS (10)
  1. TYSABRI [Suspect]
     Active Substance: NATALIZUMAB
     Indication: Multiple sclerosis
     Dosage: DOSAGE TEXT:300MG/15ML
     Dates: start: 202303, end: 202503
  2. TYSABRI [Suspect]
     Active Substance: NATALIZUMAB
     Dosage: DOSAGE TEXT:300MG/15ML
     Dates: start: 202306
  3. CHONDROITIN SULFATE (BOVINE)\DIMETHYL SULFONE\GLUCOSAMINE SULFATE [Concomitant]
     Active Substance: CHONDROITIN SULFATE (BOVINE)\DIMETHYL SULFONE\GLUCOSAMINE SULFATE
     Indication: Supplementation therapy
  4. HISTAZINE 1 [Concomitant]
     Indication: Hypersensitivity
  5. OMEGA-3 ACIDS [Concomitant]
     Active Substance: OMEGA-3 FATTY ACIDS
     Indication: Supplementation therapy
  6. DELAREX [Concomitant]
     Indication: Hypersensitivity
  7. VITAMIN D [Concomitant]
     Active Substance: VITAMIN D NOS
     Indication: Supplementation therapy
  8. FEXOFENADINE [Concomitant]
     Active Substance: FEXOFENADINE HYDROCHLORIDE
     Indication: Hypersensitivity
  9. LEVCET [Concomitant]
     Indication: Hypersensitivity
  10. LORATADINE [Concomitant]
     Active Substance: LORATADINE
     Indication: Hypersensitivity

REACTIONS (7)
  - Thyroid cancer [Recovered/Resolved]
  - Lymphatic system neoplasm [Recovered/Resolved]
  - Hyperthyroidism [Not Recovered/Not Resolved]
  - Hypersensitivity [Recovered/Resolved]
  - Haemoglobin abnormal [Unknown]
  - Glucose tolerance impaired [Not Recovered/Not Resolved]
  - Blood thyroid stimulating hormone increased [Not Recovered/Not Resolved]

NARRATIVE: CASE EVENT DATE: 20250101
